FAERS Safety Report 24629126 (Version 1)
Quarter: 2024Q4

REPORT INFORMATION
  Report Type: Spontaneous
  Country: US (occurrence: US)
  Receive Date: 20241118
  Receipt Date: 20241118
  Transmission Date: 20250114
  Serious: No
  Sender: ARCUTIS
  Company Number: US-ARCUTIS BIOTHERAPEUTICS INC-2024AER000258

PATIENT

DRUGS (4)
  1. ZORYVE [Suspect]
     Active Substance: ROFLUMILAST
     Indication: Dermatitis
     Dosage: UNK, ONCE
     Route: 061
     Dates: start: 20240802, end: 20240802
  2. IRBESARTAN [Concomitant]
     Active Substance: IRBESARTAN
     Indication: Blood pressure measurement
  3. ELIQUIS [Concomitant]
     Active Substance: APIXABAN
     Indication: Thrombosis
     Dosage: 2.5 MILLIGRAM
  4. RIVASTIGMINE [Concomitant]
     Active Substance: RIVASTIGMINE
     Indication: Memory impairment
     Dosage: UNK

REACTIONS (3)
  - Vision blurred [Recovering/Resolving]
  - Visual impairment [Recovering/Resolving]
  - Off label use [Unknown]

NARRATIVE: CASE EVENT DATE: 20240802
